FAERS Safety Report 8328559-2 (Version None)
Quarter: 2012Q2

REPORT INFORMATION
  Report Type: 
  Country: None (occurrence: None)
  Receive Date: 20120502
  Receipt Date: 20120501
  Transmission Date: 20120825
  Serious: No
  Sender: FDA-Public Use
  Company Number: US-PFIZER INC-2012106951

PATIENT
  Sex: Male

DRUGS (1)
  1. CELEBREX [Suspect]
     Indication: BONE PAIN
     Dosage: 200 MG, 2X/DAY
     Route: 048
     Dates: start: 20120401, end: 20120430

REACTIONS (2)
  - NAUSEA [None]
  - VOMITING [None]
